FAERS Safety Report 9763499 (Version 1)
Quarter: 2013Q4

REPORT INFORMATION
  Report Type: Report from Study
  Country: BR (occurrence: BR)
  Receive Date: 20131216
  Receipt Date: 20131216
  Transmission Date: 20140711
  Serious: Yes (Other)
  Sender: FDA-Public Use
  Company Number: PHHY2013BR146121

PATIENT
  Sex: Female

DRUGS (1)
  1. EXELON PATCH [Suspect]
     Indication: COGNITIVE DISORDER
     Dosage: 1 DF, DAILY
     Route: 062

REACTIONS (4)
  - Diabetes mellitus [Unknown]
  - Scleroderma [Unknown]
  - Application site hypersensitivity [Unknown]
  - Application site pain [Unknown]
